FAERS Safety Report 14394620 (Version 4)
Quarter: 2018Q2

REPORT INFORMATION
  Report Type: Spontaneous
  Country: GB (occurrence: GB)
  Receive Date: 20180116
  Receipt Date: 20180409
  Transmission Date: 20180711
  Serious: Yes (Death, Other)
  Sender: FDA-Public Use
  Company Number: GB-PFIZER INC-2018010786

PATIENT

DRUGS (2)
  1. DINOPROSTONE. [Suspect]
     Active Substance: DINOPROSTONE
     Dosage: UNK (MATERNAL DOSE: 10 MG)
     Route: 064
  2. OXYTOCIN. [Suspect]
     Active Substance: OXYTOCIN
     Dosage: UNK (MATERNAL DOSE: UNK)
     Route: 064

REACTIONS (4)
  - Pallor [Unknown]
  - Death [Fatal]
  - Apgar score low [Unknown]
  - Floppy infant [Unknown]
